FAERS Safety Report 4828637-6 (Version None)
Quarter: 2005Q4

REPORT INFORMATION
  Report Type: 
  Country: None (occurrence: None)
  Receive Date: 20051014
  Receipt Date: 20050718
  Transmission Date: 20060501
  Serious: No
  Sender: FDA-Public Use
  Company Number: 2005SP000859

PATIENT
  Age: 53 Year
  Sex: Male
  Weight: 72.5755 kg

DRUGS (7)
  1. LUNESTA [Suspect]
     Dosage: 2 MG; HS; ORAL
     Route: 048
     Dates: start: 20050101, end: 20050101
  2. WELLBUTRIN [Concomitant]
  3. LORAZEPAM [Concomitant]
  4. DEPAKOTE [Concomitant]
  5. NEXIUM [Concomitant]
  6. LIPITOR [Concomitant]
  7. KLONOPIN [Concomitant]

REACTIONS (1)
  - RESTLESS LEGS SYNDROME [None]
